FAERS Safety Report 15641388 (Version 1)
Quarter: 2018Q4

REPORT INFORMATION
  Report Type: Spontaneous
  Country: SI (occurrence: SI)
  Receive Date: 20181120
  Receipt Date: 20181120
  Transmission Date: 20190205
  Serious: Yes (Other)
  Sender: FDA-Public Use
  Company Number: SI-INCYTE CORPORATION-2018IN011523

PATIENT

DRUGS (1)
  1. JAKAVI [Suspect]
     Active Substance: RUXOLITINIB
     Indication: PRODUCT USED FOR UNKNOWN INDICATION
     Dosage: 20 MG, BID
     Route: 065
     Dates: start: 201202

REACTIONS (4)
  - Weight increased [Recovering/Resolving]
  - Chronic graft versus host disease in skin [Recovered/Resolved]
  - Diarrhoea [Unknown]
  - Chronic graft versus host disease in liver [Recovered/Resolved]

NARRATIVE: CASE EVENT DATE: 201303
